FAERS Safety Report 4456374-9 (Version None)
Quarter: 2004Q3

REPORT INFORMATION
  Report Type: 
  Country: None (occurrence: None)
  Receive Date: 20040917
  Receipt Date: 20040901
  Transmission Date: 20050211
  Serious: Yes (Other)
  Sender: FDA-Public Use
  Company Number: DSA_24963_2004

PATIENT
  Age: 33 Year
  Sex: Female

DRUGS (9)
  1. TEMESTA [Suspect]
     Indication: BIPOLAR DISORDER
     Dosage: 4.5 MG Q DAY PO
     Route: 048
     Dates: start: 20040101, end: 20040304
  2. TEMESTA [Suspect]
     Indication: MAJOR DEPRESSION
     Dosage: 4.5 MG Q DAY PO
     Route: 048
     Dates: start: 20040101, end: 20040304
  3. SEROQUEL [Suspect]
     Indication: BIPOLAR I DISORDER
     Dosage: 700 MG Q DAY PO
     Route: 048
     Dates: start: 20040211, end: 20040219
  4. SEROQUEL [Suspect]
     Indication: MAJOR DEPRESSION
     Dosage: 700 MG Q DAY PO
     Route: 048
     Dates: start: 20040211, end: 20040219
  5. SIRDALUD [Suspect]
     Indication: BIPOLAR DISORDER
     Dosage: 4 MG Q DAY PO
     Route: 048
     Dates: start: 20040101, end: 20040220
  6. SIRDALUD [Suspect]
     Indication: MAJOR DEPRESSION
     Dosage: 4 MG Q DAY PO
     Route: 048
     Dates: start: 20040101, end: 20040220
  7. ENTUMIN [Suspect]
     Indication: SLEEP DISORDER
     Dosage: 80 MG Q DAY PO
     Route: 048
     Dates: start: 20040213, end: 20040818
  8. VALPROATE SODIUM [Suspect]
     Indication: BIPOLAR I DISORDER
     Dosage: 1 G QD PO
     Route: 048
     Dates: start: 20040115, end: 20040302
  9. VALPROATE SODIUM [Suspect]
     Indication: MAJOR DEPRESSION
     Dosage: 1 G QD PO
     Route: 048
     Dates: start: 20040115, end: 20040302

REACTIONS (3)
  - CONFUSIONAL STATE [None]
  - COORDINATION ABNORMAL [None]
  - SLEEP DISORDER [None]
